FAERS Safety Report 25076081 (Version 2)
Quarter: 2025Q2

REPORT INFORMATION
  Report Type: Spontaneous
  Country: CN (occurrence: CN)
  Receive Date: 20250313
  Receipt Date: 20250608
  Transmission Date: 20250717
  Serious: Yes (Hospitalization)
  Sender: COHERUS
  Company Number: CN-SHANGHAI JUNSHI BIOSCIENCES CO., LTD.-CN2025013320

PATIENT

DRUGS (4)
  1. TORIPALIMAB [Suspect]
     Active Substance: TORIPALIMAB
     Indication: Lung neoplasm malignant
     Route: 041
     Dates: start: 20250214, end: 20250214
  2. PEMETREXED DISODIUM [Suspect]
     Active Substance: PEMETREXED DISODIUM
     Indication: Lung neoplasm malignant
     Route: 041
     Dates: start: 20250214, end: 20250214
  3. CISPLATIN [Suspect]
     Active Substance: CISPLATIN
     Indication: Lung neoplasm malignant
     Dosage: 30 MG (D1-D2, QD)
     Route: 041
     Dates: start: 20250214, end: 20250216
  4. CISPLATIN [Suspect]
     Active Substance: CISPLATIN
     Dosage: 40 MG (D3, QD)
     Route: 041

REACTIONS (1)
  - Myelosuppression [Recovering/Resolving]

NARRATIVE: CASE EVENT DATE: 20250218
